FAERS Safety Report 5839878-3 (Version None)
Quarter: 2008Q3

REPORT INFORMATION
  Report Type: 
  Country: None (occurrence: None)
  Receive Date: 20080811
  Receipt Date: 20080730
  Transmission Date: 20090109
  Serious: Yes (Other)
  Sender: FDA-Public Use
  Company Number: US-AMGEN-US298510

PATIENT
  Sex: Male

DRUGS (12)
  1. ARANESP [Suspect]
     Indication: RENAL FAILURE CHRONIC
     Route: 058
  2. SODIUM BICARBONATE [Concomitant]
  3. KLOR-CON [Concomitant]
  4. LEVOCARNITINE [Concomitant]
  5. CYSTINE [Concomitant]
  6. SYNTHROID [Concomitant]
  7. ROCALTROL [Concomitant]
  8. SALT SOLUTIONS [Concomitant]
  9. MIRALAX [Concomitant]
  10. PREVACID [Concomitant]
  11. REGLAN [Concomitant]
  12. UNSPECIFIED GROWTH HORMONE [Concomitant]

REACTIONS (1)
  - ANAEMIA [None]
